FAERS Safety Report 18523747 (Version 3)
Quarter: 2021Q2

REPORT INFORMATION
  Report Type: Spontaneous
  Country: CA (occurrence: CA)
  Receive Date: 20201119
  Receipt Date: 20210513
  Transmission Date: 20210717
  Serious: Yes (Other)
  Sender: FDA-Public Use
  Company Number: CA-SAMSUNG BIOEPIS-SB-2020-34570

PATIENT
  Age: 60 Year
  Sex: Male

DRUGS (1)
  1. INFLIXIMAB [Suspect]
     Active Substance: INFLIXIMAB
     Indication: PSORIASIS
     Route: 042

REACTIONS (6)
  - Blood pressure fluctuation [Unknown]
  - Blood pressure increased [Unknown]
  - Off label use [Unknown]
  - Product use issue [Unknown]
  - Hypertension [Unknown]
  - Intentional product use issue [Unknown]
